FAERS Safety Report 16919160 (Version 2)
Quarter: 2019Q4

REPORT INFORMATION
  Report Type: Spontaneous
  Country: US (occurrence: US)
  Receive Date: 20191015
  Receipt Date: 20191017
  Transmission Date: 20200122
  Serious: No
  Sender: FDA-Public Use
  Company Number: US-PFIZER INC-2019443945

PATIENT
  Age: 52 Year
  Sex: Male

DRUGS (2)
  1. SOMAVERT [Suspect]
     Active Substance: PEGVISOMANT
     Dosage: 20 MG, UNK
     Dates: start: 20180623
  2. SOMATULINE [LANREOTIDE] [Suspect]
     Active Substance: LANREOTIDE
     Dosage: UNK

REACTIONS (1)
  - Flushing [Unknown]
